FAERS Safety Report 5344561-7 (Version None)
Quarter: 2007Q2

REPORT INFORMATION
  Report Type: 
  Country: None (occurrence: None)
  Receive Date: 20070604
  Receipt Date: 20070316
  Transmission Date: 20071010
  Serious: Yes (Hospitalization)
  Sender: FDA-Public Use
  Company Number: FR-GILEAD-2007-0012321

PATIENT
  Age: 55 Year
  Sex: Male

DRUGS (8)
  1. VIREAD [Suspect]
     Route: 048
     Dates: start: 20061109, end: 20070130
  2. KIVEXA [Suspect]
     Route: 048
     Dates: start: 20061024, end: 20070130
  3. TRIATEC [Concomitant]
  4. PLAVIX [Concomitant]
  5. CELECTOL [Concomitant]
  6. LASIX [Concomitant]
  7. ALDACTONE [Concomitant]
  8. GABAPENTIN [Concomitant]

REACTIONS (1)
  - HALLUCINATION, VISUAL [None]
